FAERS Safety Report 15962616 (Version 5)
Quarter: 2022Q1

REPORT INFORMATION
  Report Type: Report from Study
  Country: US (occurrence: US)
  Receive Date: 20190214
  Receipt Date: 20220107
  Transmission Date: 20220423
  Serious: Yes (Other)
  Sender: FDA-Public Use
  Company Number: US-PFIZER INC-2019062947

PATIENT
  Age: 14 Month
  Sex: Female
  Weight: 9.57 kg

DRUGS (9)
  1. VINCRISTINE SULFATE [Suspect]
     Active Substance: VINCRISTINE SULFATE
     Indication: Embryonal rhabdomyosarcoma
     Dosage: PER DOSING TABLE FOR PATIENTS { 0.6 M2 IV OVER 1 MINUTE
     Route: 042
     Dates: start: 20180623, end: 20181206
  2. VINCRISTINE SULFATE [Suspect]
     Active Substance: VINCRISTINE SULFATE
     Dosage: 0.65 DOSE
     Dates: start: 20181213
  3. TEMSIROLIMUS [Suspect]
     Active Substance: TEMSIROLIMUS
     Indication: Embryonal rhabdomyosarcoma
     Dosage: 0.5 MG/KG FOR PATIENTS { 10 KG IV OVER 30-60 MINUTES ON DAYS 1, 8, 15 OF CYCLES 1-4, 8,9,10, 11-14
     Route: 042
     Dates: start: 20180623, end: 20180905
  4. TEMSIROLIMUS [Suspect]
     Active Substance: TEMSIROLIMUS
     Dosage: 4.8 MG, UNK
     Dates: start: 20181213
  5. CAMPTOSAR [Suspect]
     Active Substance: IRINOTECAN HYDROCHLORIDE
     Indication: Embryonal rhabdomyosarcoma
     Dosage: PER DOSING TABLE FOR PATIENTS { 0.6 M2 IV OVER 90 MINUTES ON DAYS 1-5 OF CYCLES 2 AND 4, 6, 7, 9, 11
     Route: 042
     Dates: start: 20180711, end: 20181118
  6. CYCLOPHOSPHAMIDE [Suspect]
     Active Substance: CYCLOPHOSPHAMIDE
     Indication: Embryonal rhabdomyosarcoma
     Dosage: PER DOSING TABLE FOR PATIENTS { 0.6 M2 IV OVER 60 MINUTES ON DAY 1 OF CYCLES 5, 8 AND 10
     Route: 042
     Dates: start: 20180623, end: 20181206
  7. CYCLOPHOSPHAMIDE [Suspect]
     Active Substance: CYCLOPHOSPHAMIDE
     Dosage: 25 MG/M2, CYCLIC, MAINTENANCE (CYCLE = 28 DAYS)
     Route: 048
     Dates: start: 20180623
  8. DACTINOMYCIN [Suspect]
     Active Substance: DACTINOMYCIN
     Indication: Embryonal rhabdomyosarcoma
     Dosage: PER DOSING TABLE FOR PATIENTS {14 KG IV OVER 1-5 MINUTES ON DAY 1 OF CYCLES 5, 8 AND 10
     Route: 042
     Dates: start: 20180623, end: 20181206
  9. VINORELBINE TARTRATE [Concomitant]
     Active Substance: VINORELBINE TARTRATE
     Indication: Embryonal rhabdomyosarcoma
     Dosage: PER DOSING TABLE FOR PATIENTS { 0.6M2 IV ON DAYS 1, 8, AND 15
     Dates: start: 20180623

REACTIONS (1)
  - Alanine aminotransferase increased [Not Recovered/Not Resolved]

NARRATIVE: CASE EVENT DATE: 20181213
